FAERS Safety Report 21847105 (Version 1)
Quarter: 2023Q1

REPORT INFORMATION
  Report Type: Spontaneous
  Country: DE (occurrence: DE)
  Receive Date: 20230111
  Receipt Date: 20230111
  Transmission Date: 20230417
  Serious: Yes (Hospitalization, Other)
  Sender: FDA-Public Use
  Company Number: DE-BFARM-22010288

PATIENT
  Age: 65 Year
  Sex: Female

DRUGS (6)
  1. CLOZAPINE [Suspect]
     Active Substance: CLOZAPINE
     Indication: Product used for unknown indication
     Dosage: UNK (12.5-100MG)
     Route: 048
     Dates: start: 20220705, end: 20220803
  2. CARIPRAZINE [Concomitant]
     Active Substance: CARIPRAZINE
     Indication: Product used for unknown indication
     Dosage: 1.5 MILLIGRAM, ONCE A DAY
     Route: 048
     Dates: start: 20220528, end: 20220530
  3. CARIPRAZINE [Concomitant]
     Active Substance: CARIPRAZINE
     Dosage: 3 MILLIGRAM, ONCE A DAY
     Route: 048
     Dates: start: 20220531, end: 20220604
  4. CARIPRAZINE [Concomitant]
     Active Substance: CARIPRAZINE
     Dosage: 4.5 MILLIGRAM, ONCE A DAY
     Route: 048
     Dates: start: 20220605, end: 20220608
  5. CARIPRAZINE [Concomitant]
     Active Substance: CARIPRAZINE
     Dosage: 3 MILLIGRAM, ONCE A DAY
     Route: 048
     Dates: start: 20220609, end: 20220801
  6. CARIPRAZINE [Concomitant]
     Active Substance: CARIPRAZINE
     Dosage: 1.5 MILLIGRAM, ONCE A DAY
     Route: 048
     Dates: start: 20220802, end: 20220810

REACTIONS (5)
  - Pericarditis [Recovered/Resolved]
  - Myocarditis [Recovered/Resolved]
  - Performance status decreased [Unknown]
  - Palpitations [Unknown]
  - Back pain [Unknown]

NARRATIVE: CASE EVENT DATE: 20220803
